FAERS Safety Report 6153447-X (Version None)
Quarter: 2009Q2

REPORT INFORMATION
  Report Type: 
  Country: None (occurrence: None)
  Receive Date: 20090413
  Receipt Date: 20090409
  Transmission Date: 20091009
  Serious: Yes (Other)
  Sender: FDA-Public Use
  Company Number: DE-ABBOTT-09P-062-0567280-00

PATIENT
  Age: 52 Year
  Sex: Male

DRUGS (1)
  1. KLACID [Suspect]
     Indication: BRONCHITIS BACTERIAL
     Route: 048
     Dates: start: 20090225, end: 20090302

REACTIONS (4)
  - DECREASED INTEREST [None]
  - DEPERSONALISATION [None]
  - MERYCISM [None]
  - SUICIDAL IDEATION [None]
